FAERS Safety Report 8249236-2 (Version None)
Quarter: 2012Q1

REPORT INFORMATION
  Report Type: 
  Country: None (occurrence: None)
  Receive Date: 20120327
  Receipt Date: 20120315
  Transmission Date: 20120608
  Serious: Yes (Death, Hospitalization, Other)
  Sender: FDA-Public Use
  Company Number: 2012MA003461

PATIENT
  Sex: Male

DRUGS (23)
  1. SPIRONOLACTONE [Concomitant]
  2. LIPITOR [Concomitant]
  3. FLOMAX [Concomitant]
  4. PLAVIX [Concomitant]
  5. ATENOLOL [Concomitant]
  6. CLOPIDOGREL [Concomitant]
  7. VERSED [Concomitant]
  8. AFRIN [Concomitant]
  9. DOCUSATE SODIUM [Concomitant]
  10. DIGOXIN [Suspect]
     Indication: PRODUCT USED FOR UNKNOWN INDICATION
     Dosage: 250 MCG; PO
     Route: 048
     Dates: start: 20070320, end: 20081119
  11. HYTRIN [Concomitant]
  12. PRILOSEC [Concomitant]
  13. BAYCOL [Concomitant]
  14. ZOGRAN [Concomitant]
  15. ALLEGRA-D 12 HOUR [Concomitant]
  16. TB24 [Concomitant]
  17. ARICEPT [Concomitant]
  18. COUMADIN [Concomitant]
  19. LEVAQUIN [Concomitant]
  20. METOPROLOL TARTRATE [Concomitant]
  21. TOPROL-XL [Concomitant]
  22. ALTACE [Concomitant]
  23. FLONASE [Concomitant]

REACTIONS (26)
  - NASOPHARYNGITIS [None]
  - URETHRAL STENOSIS [None]
  - PAIN [None]
  - MULTIPLE INJURIES [None]
  - CEREBRAL ATROPHY [None]
  - TOXICITY TO VARIOUS AGENTS [None]
  - CATARACT [None]
  - DYSPNOEA [None]
  - PALPITATIONS [None]
  - SYNCOPE [None]
  - ATRIAL FIBRILLATION [None]
  - ECONOMIC PROBLEM [None]
  - DEHYDRATION [None]
  - FAECES DISCOLOURED [None]
  - ATELECTASIS [None]
  - EYELID CYST [None]
  - CARDIAC FAILURE CONGESTIVE [None]
  - BENIGN PROSTATIC HYPERPLASIA [None]
  - ABDOMINAL TENDERNESS [None]
  - TENDERNESS [None]
  - CEREBRAL ISCHAEMIA [None]
  - CORONARY ARTERY DISEASE [None]
  - ORTHOSTATIC HYPOTENSION [None]
  - ACUTE SINUSITIS [None]
  - VERTIGO [None]
  - MENTAL STATUS CHANGES [None]
